FAERS Safety Report 6896693-X (Version None)
Quarter: 2010Q3

REPORT INFORMATION
  Report Type: 
  Country: None (occurrence: None)
  Receive Date: 20100802
  Receipt Date: 20070122
  Transmission Date: 20110219
  Serious: No
  Sender: FDA-Public Use
  Company Number: US-PFIZER INC-2006117781

PATIENT
  Sex: Female
  Weight: 77.56 kg

DRUGS (3)
  1. LYRICA [Suspect]
     Indication: TRIGEMINAL NEURALGIA
     Route: 048
     Dates: start: 20060327, end: 20060706
  2. EVISTA [Concomitant]
  3. VICODIN [Concomitant]

REACTIONS (3)
  - ELECTROLYTE IMBALANCE [None]
  - HYPERNATRAEMIA [None]
  - OEDEMA [None]
